FAERS Safety Report 8448046-0 (Version None)
Quarter: 2012Q2

REPORT INFORMATION
  Report Type: 
  Country: None (occurrence: None)
  Receive Date: 20120619
  Receipt Date: 20120606
  Transmission Date: 20120825
  Serious: Yes (Death)
  Sender: FDA-Public Use
  Company Number: IT-BAYER-2012-055756

PATIENT
  Age: 51 Year
  Sex: Male

DRUGS (2)
  1. PLAVIX [Suspect]
     Indication: STENT PLACEMENT
     Dosage: 600 MG, ONCE
     Route: 048
     Dates: start: 20120502, end: 20120502
  2. ASPIRIN [Suspect]
     Indication: STENT PLACEMENT
     Dosage: 300 MG, ONCE
     Route: 048
     Dates: start: 20120502, end: 20120502

REACTIONS (1)
  - CEREBRAL HAEMORRHAGE [None]
